FAERS Safety Report 24033421 (Version 1)
Quarter: 2024Q3

REPORT INFORMATION
  Report Type: Spontaneous
  Country: GB (occurrence: GB)
  Receive Date: 20240701
  Receipt Date: 20240701
  Transmission Date: 20241017
  Serious: Yes (Life-Threatening)
  Sender: DR REDDYS
  Company Number: None

PATIENT
  Age: 82 Year
  Sex: Female
  Weight: 56 kg

DRUGS (9)
  1. PREGABALIN [Suspect]
     Active Substance: PREGABALIN
     Indication: Ill-defined disorder
     Dosage: TPP YC - PLEASE RECLASSIFY
     Dates: start: 20240624
  2. CYCLIZINE [Concomitant]
     Active Substance: CYCLIZINE
     Indication: Ill-defined disorder
     Dosage: TAKE ONE TABLET THREE TIMES A DAY WHEN REQUIRED?TPP YC - PLEASE RECLASSIFY
     Dates: start: 20240410, end: 20240424
  3. AMOXICILLIN [Concomitant]
     Active Substance: AMOXICILLIN
     Indication: Ill-defined disorder
     Dosage: UTI (RECURRENT) 2ND CHOICE: TAKE ONE CAPSULE AS A SINGLE DOSE WHEN EXPOSED TO A TRIGGER?TPP YC - PLE
     Dates: start: 20240429, end: 20240502
  4. AMOXICILLIN [Concomitant]
     Active Substance: AMOXICILLIN
     Indication: Urinary tract infection
  5. MACROGOL COMPOUND [Concomitant]
     Indication: Ill-defined disorder
     Dosage: TAKE THE CONTENTS OF ONE TO THREE SACHETS DAILY...?TPP YC - PLEASE RECLASSIF
     Dates: start: 20240429, end: 20240509
  6. PREGABALIN [Concomitant]
     Active Substance: PREGABALIN
     Indication: Ill-defined disorder
     Dosage: TAKE ONE TWICE DAILY?TPP YC - PLEASE RECLASSIFY
     Dates: start: 20240530
  7. BUPRENORPHINE [Concomitant]
     Active Substance: BUPRENORPHINE
     Indication: Ill-defined disorder
     Dosage: APPLY ONE WEEKLY?TPP YC - PLEASE RECLASSIFY
     Dates: start: 20240202
  8. LOSARTAN [Concomitant]
     Active Substance: LOSARTAN
     Indication: Hypotension
     Dosage: TAKE ONE DAILY TO LOW BLOOD PRESSURE?TPP YC - PLEASE RECLASSIFY
     Dates: start: 20240408
  9. ROSUVASTATIN [Concomitant]
     Active Substance: ROSUVASTATIN
     Indication: Blood cholesterol decreased
     Dosage: TAKE ONE DAILY TO LOWER CHOLESTEROL?TPP YC - PLEASE RECLASSIFY
     Dates: start: 20240429

REACTIONS (1)
  - Mouth swelling [Recovered/Resolved]

NARRATIVE: CASE EVENT DATE: 20240624
